FAERS Safety Report 6072218-6 (Version None)
Quarter: 2009Q1

REPORT INFORMATION
  Report Type: 
  Country: None (occurrence: None)
  Receive Date: 20090206
  Receipt Date: 20090206
  Transmission Date: 20090719
  Serious: Yes (Other)
  Sender: FDA-Public Use
  Company Number: None

PATIENT
  Age: 66 Year
  Sex: Female
  Weight: 76 kg

DRUGS (1)
  1. VARENICLINE 1 MG PFIZER [Suspect]
     Indication: SMOKING CESSATION THERAPY
     Dosage: 1 MG BID BUCCAL
     Route: 002
     Dates: start: 20081101, end: 20090131

REACTIONS (2)
  - CELLULITIS [None]
  - HYPOMANIA [None]
